FAERS Safety Report 13020741 (Version 1)
Quarter: 2016Q4

REPORT INFORMATION
  Report Type: Report from Study
  Country: US (occurrence: US)
  Receive Date: 20161212
  Receipt Date: 20161212
  Transmission Date: 20170207
  Serious: Yes (Other)
  Sender: FDA-Public Use
  Company Number: US-ASTELLAS-2016US048450

PATIENT

DRUGS (8)
  1. ERLOTINIB [Suspect]
     Active Substance: ERLOTINIB
     Dosage: 150 MG, ONCE DAILY,DAYS 3-8,DOSE LEVEL
     Route: 048
  2. ERLOTINIB [Suspect]
     Active Substance: ERLOTINIB
     Indication: BILE DUCT CANCER
     Dosage: 50 MG, ONCE DAILY,FOR 5 DAYS ON DAYS 3-8
     Route: 048
  3. ERLOTINIB [Suspect]
     Active Substance: ERLOTINIB
     Dosage: 100 MG, ONCE DAILY,14-DAY CYCLES
     Route: 048
  4. GEMCITABINE [Suspect]
     Active Substance: GEMCITABINE\GEMCITABINE HYDROCHLORIDE
     Indication: BILE DUCT CANCER
     Dosage: 800 MG/M2, EVERY 2 WEEKS,10 MG/M2/MIN INFUSION ON DAY 1,14-DAY CYCLES,DOSE LEVEL: 0,1,2,3,
     Route: 065
  5. OXALIPLATIN. [Suspect]
     Active Substance: OXALIPLATIN
     Indication: BILE DUCT CANCER
     Dosage: 85 MG/M2, EVERY 2 WEEKS,AS A 2 H INFUSION ON DAY 2
     Route: 065
  6. ERLOTINIB [Suspect]
     Active Substance: ERLOTINIB
     Route: 048
  7. GEMCITABINE [Suspect]
     Active Substance: GEMCITABINE\GEMCITABINE HYDROCHLORIDE
     Dosage: 1000 MG/M2, EVERY 2 WEEKS,10 MG/M2/MIN INFUSION ON DAY 1,DOSE LEVEL: 4
     Route: 065
  8. ERLOTINIB [Suspect]
     Active Substance: ERLOTINIB
     Route: 048

REACTIONS (4)
  - Lymphopenia [Unknown]
  - Cerebral ischaemia [Unknown]
  - Leukopenia [Unknown]
  - Neutropenia [Unknown]
